FAERS Safety Report 8483919-4 (Version None)
Quarter: 2012Q3

REPORT INFORMATION
  Report Type: 
  Country: None (occurrence: None)
  Receive Date: 20120703
  Receipt Date: 20120627
  Transmission Date: 20120928
  Serious: Yes (Death)
  Sender: FDA-Public Use
  Company Number: US-PFIZER INC-2012132573

PATIENT
  Sex: Female

DRUGS (10)
  1. DEXILANT [Concomitant]
     Dosage: UNK
  2. DILAUDID [Concomitant]
     Dosage: UNK
  3. MARINOL [Concomitant]
     Dosage: UNK
  4. ZOFRAN [Concomitant]
     Dosage: UNK
  5. COLACE [Concomitant]
     Dosage: UNK
  6. OXYCONTIN [Concomitant]
     Dosage: UNK
  7. KEPPRA [Concomitant]
     Dosage: UNK
  8. PROMETHAZINE [Concomitant]
     Dosage: UNK
  9. XANAX [Concomitant]
     Dosage: UNK
  10. XALKORI [Suspect]
     Indication: LUNG NEOPLASM MALIGNANT
     Dosage: 250 MG, 2X/DAY
     Route: 048
     Dates: start: 20120405, end: 20120501

REACTIONS (2)
  - LUNG NEOPLASM MALIGNANT [None]
  - DISEASE PROGRESSION [None]
